FAERS Safety Report 9299271 (Version 2)
Quarter: 2013Q2

REPORT INFORMATION
  Report Type: Spontaneous
  Country: US (occurrence: US)
  Receive Date: 20130520
  Receipt Date: 20130522
  Transmission Date: 20140414
  Serious: No
  Sender: FDA-Public Use
  Company Number: US-TEVA-406559USA

PATIENT
  Age: 24 Year
  Sex: Female
  Weight: 95.34 kg

DRUGS (3)
  1. PLAN B ONE-STEP [Suspect]
     Indication: POST COITAL CONTRACEPTION
     Dosage: 1.5 MILLIGRAM DAILY;
     Route: 048
     Dates: start: 20130517, end: 20130517
  2. KLONOPIN [Concomitant]
     Indication: ANXIETY
  3. DOXYCYCLINE [Concomitant]
     Indication: UTERINE DISORDER

REACTIONS (3)
  - Pelvic pain [Not Recovered/Not Resolved]
  - Nausea [Not Recovered/Not Resolved]
  - Dizziness [Not Recovered/Not Resolved]
